FAERS Safety Report 16244269 (Version 2)
Quarter: 2019Q4

REPORT INFORMATION
  Report Type: Spontaneous
  Country: US (occurrence: US)
  Receive Date: 20190426
  Receipt Date: 20191007
  Transmission Date: 20200122
  Serious: Yes (Hospitalization, Other)
  Sender: FDA-Public Use
  Company Number: US-PFIZER INC-2019177595

PATIENT
  Age: 47 Year
  Sex: Male
  Weight: 85.7 kg

DRUGS (10)
  1. THIAMINE. [Concomitant]
     Active Substance: THIAMINE
     Dosage: UNK
  2. VITAMIN B12 [Concomitant]
     Active Substance: CYANOCOBALAMIN
     Dosage: UNK
  3. TELAVANCIN [Suspect]
     Active Substance: TELAVANCIN
     Indication: BACTERAEMIA
     Dosage: 7.5 MG/KG, 24H (INFUSIONS OF TELAVANCIN FOR 5 WEEKS VIA PERIPHERALLY INSERTED CENTRAL CATHETER (P)
     Route: 042
  4. TELAVANCIN [Suspect]
     Active Substance: TELAVANCIN
     Indication: STAPHYLOCOCCAL INFECTION
  5. ATORVASTATIN [Concomitant]
     Active Substance: ATORVASTATIN
     Dosage: UNK
  6. DAPTOMYCIN. [Concomitant]
     Active Substance: DAPTOMYCIN
     Indication: PNEUMONIA KLEBSIELLA
  7. CIPROFLOXACIN. [Concomitant]
     Active Substance: CIPROFLOXACIN
     Indication: PNEUMONIA KLEBSIELLA
     Dosage: UNK
  8. IBUPROFEN. [Suspect]
     Active Substance: IBUPROFEN
     Dosage: UNK, AS NEEDED
  9. FOLIC ACID. [Concomitant]
     Active Substance: FOLIC ACID
     Dosage: UNK
  10. ESCITALOPRAM [Concomitant]
     Active Substance: ESCITALOPRAM OXALATE
     Dosage: UNK

REACTIONS (3)
  - Acute kidney injury [Recovering/Resolving]
  - Renal tubular injury [Recovering/Resolving]
  - Tubulointerstitial nephritis [Recovering/Resolving]
